FAERS Safety Report 19073861 (Version 1)
Quarter: 2021Q1

REPORT INFORMATION
  Report Type: Report from Study
  Country: None (occurrence: US)
  Receive Date: 20210330
  Receipt Date: 20210330
  Transmission Date: 20210420
  Serious: Yes (Other)
  Sender: FDA-Public Use
  Company Number: US-ABBVIE-21K-163-3748219-00

PATIENT
  Sex: Male

DRUGS (5)
  1. HUMIRA [Suspect]
     Active Substance: ADALIMUMAB
     Indication: RHEUMATOID ARTHRITIS
     Route: 058
     Dates: start: 20171115
  2. KEVZARA [Suspect]
     Active Substance: SARILUMAB
     Route: 058
     Dates: start: 2019, end: 20200702
  3. ORENCIA [Suspect]
     Active Substance: ABATACEPT
     Indication: RHEUMATOID ARTHRITIS
     Route: 065
  4. KEVZARA [Suspect]
     Active Substance: SARILUMAB
     Route: 058
     Dates: start: 2019
  5. KEVZARA [Suspect]
     Active Substance: SARILUMAB
     Indication: RHEUMATOID ARTHRITIS
     Route: 058
     Dates: start: 20180615

REACTIONS (9)
  - White blood cell count abnormal [Recovered/Resolved]
  - Product use issue [Unknown]
  - Drug ineffective [Recovered/Resolved]
  - Rheumatoid arthritis [Recovering/Resolving]
  - Blood count abnormal [Recovering/Resolving]
  - Drug ineffective [Unknown]
  - White blood cell count decreased [Recovered/Resolved]
  - Nasopharyngitis [Recovering/Resolving]
  - Weight increased [Recovered/Resolved]

NARRATIVE: CASE EVENT DATE: 2018
